FAERS Safety Report 25104248 (Version 1)
Quarter: 2025Q1

REPORT INFORMATION
  Report Type: Report from Study
  Country: CA (occurrence: CA)
  Receive Date: 20250321
  Receipt Date: 20250321
  Transmission Date: 20250409
  Serious: Yes (Other)
  Sender: ALEXION PHARMACEUTICALS
  Company Number: CA-AstraZeneca-CH-00828866A

PATIENT

DRUGS (3)
  1. ANIFROLUMAB [Suspect]
     Active Substance: ANIFROLUMAB
     Indication: Autoantibody positive
  2. ANIFROLUMAB [Suspect]
     Active Substance: ANIFROLUMAB
     Indication: Systemic lupus erythematosus
  3. MYCOPHENOLIC ACID [Concomitant]
     Active Substance: MYCOPHENOLIC ACID
     Route: 065

REACTIONS (8)
  - Endometriosis [Unknown]
  - Fatigue [Unknown]
  - Constipation [Unknown]
  - Hernia [Unknown]
  - Nasopharyngitis [Unknown]
  - Malaise [Unknown]
  - Viral infection [Unknown]
  - Dysstasia [Unknown]
